FAERS Safety Report 19838208 (Version 2)
Quarter: 2023Q1

REPORT INFORMATION
  Report Type: Spontaneous
  Country: NL (occurrence: NL)
  Receive Date: 20210916
  Receipt Date: 20230103
  Transmission Date: 20230417
  Serious: Yes (Death, Other)
  Sender: FDA-Public Use
  Company Number: NL-AMGEN-NLDSP2021141883

PATIENT

DRUGS (1)
  1. PANITUMUMAB [Suspect]
     Active Substance: PANITUMUMAB
     Indication: Colorectal cancer metastatic
     Dosage: UNK
     Route: 065

REACTIONS (6)
  - Death [Fatal]
  - Colorectal cancer metastatic [Unknown]
  - Gene mutation [Unknown]
  - Drug resistance [Unknown]
  - Therapy non-responder [Unknown]
  - Therapy partial responder [Unknown]
